FAERS Safety Report 9086004 (Version 1)
Quarter: 2013Q1

REPORT INFORMATION
  Report Type: Report from Study
  Country: US (occurrence: US)
  Receive Date: 20130131
  Receipt Date: 20130131
  Transmission Date: 20140127
  Serious: No
  Sender: FDA-Public Use
  Company Number: US-ABBOTT-12P-163-0995117-00

PATIENT
  Age: 45 Year
  Sex: Male

DRUGS (16)
  1. HUMIRA [Suspect]
     Indication: CROHN^S DISEASE
     Route: 058
     Dates: start: 20120925, end: 20120925
  2. HUMIRA [Suspect]
     Route: 058
     Dates: start: 20121009, end: 20121009
  3. HUMIRA [Suspect]
     Route: 058
  4. ASACOL [Concomitant]
     Indication: CROHN^S DISEASE
  5. LORATADINE [Concomitant]
     Indication: HYPERSENSITIVITY
     Dosage: 10 MG DAILY
  6. LISINOPRIL [Concomitant]
     Indication: HYPERTENSION
     Dosage: 20 MG DAILY
  7. XANAX [Concomitant]
     Indication: ANXIETY
     Dosage: THREE TIMES A DAY, AS NEEDED
  8. EQUATE ACID REDUCER [Concomitant]
     Indication: GASTROOESOPHAGEAL REFLUX DISEASE
     Dosage: 150 MG DAILY
  9. HYDROCODONE [Concomitant]
     Indication: PAIN
     Dosage: 10/325 MG, 1 EVERY 8 HRS
  10. DULERA [Concomitant]
     Indication: ASTHMA
  11. DULERA [Concomitant]
     Indication: CHRONIC OBSTRUCTIVE PULMONARY DISEASE
  12. PREDNISONE [Concomitant]
     Indication: CROHN^S DISEASE
     Dosage: 30 MG DAILY
  13. XANAX XR [Concomitant]
     Indication: INSOMNIA
     Dosage: AT BEDTIME
  14. VITAMIN D [Concomitant]
     Indication: PRODUCT USED FOR UNKNOWN INDICATION
     Dosage: DAILY
  15. IRON [Concomitant]
     Indication: PRODUCT USED FOR UNKNOWN INDICATION
     Dosage: DAILY
  16. MULTIVITAMIN [Concomitant]
     Indication: PRODUCT USED FOR UNKNOWN INDICATION
     Dosage: DAILY

REACTIONS (4)
  - Haematochezia [Not Recovered/Not Resolved]
  - Night sweats [Not Recovered/Not Resolved]
  - Hyperhidrosis [Not Recovered/Not Resolved]
  - Melaena [Not Recovered/Not Resolved]
